FAERS Safety Report 6026608-8 (Version None)
Quarter: 2008Q4

REPORT INFORMATION
  Report Type: 
  Country: None (occurrence: None)
  Receive Date: 20081231
  Receipt Date: 20081209
  Transmission Date: 20090506
  Serious: Yes (Death, Hospitalization)
  Sender: FDA-Public Use
  Company Number: 2008AL009395

PATIENT
  Age: 71 Year
  Sex: Female

DRUGS (1)
  1. DIGOXIN [Suspect]
     Dosage: 0.125MG, DAILY, PO
     Route: 048

REACTIONS (7)
  - DYSPNOEA [None]
  - ENCEPHALOPATHY [None]
  - PLEURAL EFFUSION [None]
  - STAPHYLOCOCCAL SEPSIS [None]
  - SWELLING [None]
  - THERAPEUTIC AGENT TOXICITY [None]
  - TREATMENT NONCOMPLIANCE [None]
